FAERS Safety Report 7818183-X (Version None)
Quarter: 2011Q4

REPORT INFORMATION
  Report Type: 
  Country: None (occurrence: None)
  Receive Date: 20111017
  Receipt Date: 20111006
  Transmission Date: 20120403
  Serious: Yes (Other)
  Sender: FDA-Public Use
  Company Number: NO-BAXTER-2011BH031543

PATIENT

DRUGS (11)
  1. BLEOMYCIN SULFATE [Suspect]
     Indication: HODGKIN'S DISEASE
     Route: 042
  2. PROCARBAZINE HYDROCHLORIDE [Suspect]
     Indication: HODGKIN'S DISEASE
     Route: 048
  3. ETOPOSIDE [Suspect]
     Indication: HODGKIN'S DISEASE
     Route: 042
  4. NEUPOGEN [Suspect]
     Indication: HODGKIN'S DISEASE
     Route: 065
  5. DOXORUBICIN HCL [Suspect]
     Indication: HODGKIN'S DISEASE
     Route: 042
  6. VINCRISTINE SULFATE [Suspect]
     Indication: HODGKIN'S DISEASE
     Route: 042
  7. CYCLOPHOSPHAMIDE [Suspect]
     Indication: HODGKIN'S DISEASE
     Route: 042
  8. PREDNISOLONE [Suspect]
     Indication: HODGKIN'S DISEASE
     Route: 048
  9. DOXORUBICIN HCL [Suspect]
     Route: 042
  10. ETOPOSIDE [Suspect]
     Route: 042
  11. CYCLOPHOSPHAMIDE [Suspect]
     Route: 042

REACTIONS (1)
  - PNEUMOCYSTIS JIROVECI PNEUMONIA [None]
